FAERS Safety Report 12191374 (Version 3)
Quarter: 2016Q2

REPORT INFORMATION
  Report Type: Report from Study
  Country: AU (occurrence: AU)
  Receive Date: 20160318
  Receipt Date: 20160405
  Transmission Date: 20160815
  Serious: Yes (Other)
  Sender: FDA-Public Use
  Company Number: AU-PFIZER INC-2016088032

PATIENT
  Age: 24 Year
  Sex: Female
  Weight: 68.5 kg

DRUGS (1)
  1. DEPO-PROVERA [Suspect]
     Active Substance: MEDROXYPROGESTERONE ACETATE
     Indication: CONTRACEPTION
     Dosage: UNK

REACTIONS (6)
  - Drug ineffective [Unknown]
  - Metrorrhagia [Unknown]
  - Menorrhagia [Unknown]
  - Abortion spontaneous [Unknown]
  - Unintended pregnancy [Unknown]
  - Menstruation irregular [Unknown]
